FAERS Safety Report 4533329-7 (Version None)
Quarter: 2004Q4

REPORT INFORMATION
  Report Type: 
  Country: None (occurrence: None)
  Receive Date: 20041210
  Receipt Date: 20041104
  Transmission Date: 20050328
  Serious: Yes (Other)
  Sender: FDA-Public Use
  Company Number: 2004-00758

PATIENT
  Age: 64 Year
  Sex: Male
  Weight: 83 kg

DRUGS (18)
  1. VELCADE [Suspect]
     Indication: MULTIPLE MYELOMA
     Dates: start: 20041027
  2. PROCRIT (ERYTHROPOIETIN) [Concomitant]
  3. HUMALOG [Concomitant]
  4. HUMULIN (INSULIN HUMAN, INSULIN ISOPHANE, HUMAN BIOSYNTHETIC) [Concomitant]
  5. MAGNESIUM (MAGNESIUM) [Concomitant]
  6. CALCIUM (CALCIUM) [Concomitant]
  7. MULTIPLE VITAMINS (ERGOCALDIFEROL, VITAMIN B NOS, TOCOPHEROL, ASCORBIC [Concomitant]
  8. MIACALCIN [Concomitant]
  9. ICAR-C [Concomitant]
  10. NEURONTIN [Concomitant]
  11. EFFEXOR [Concomitant]
  12. ZOCOR [Concomitant]
  13. WARFARIN SODIUM [Concomitant]
  14. DIGOXIN [Concomitant]
  15. LORTAB [Concomitant]
  16. LODERM (ERYTHROMYCIN ESTOLATE) [Concomitant]
  17. PROMANTINE (MIDODRINE HYDROCHLORIDE) [Concomitant]
  18. CIPROFLOXACIN [Concomitant]

REACTIONS (5)
  - ARTHRITIS [None]
  - ASTHENIA [None]
  - FATIGUE [None]
  - MENTAL STATUS CHANGES [None]
  - RENAL IMPAIRMENT [None]
